FAERS Safety Report 18483478 (Version 1)
Quarter: 2020Q4

REPORT INFORMATION
  Report Type: Spontaneous
  Country: US (occurrence: US)
  Receive Date: 20201109
  Receipt Date: 20201109
  Transmission Date: 20210114
  Serious: No
  Sender: FDA-Public Use
  Company Number: US-ROCHE-2637420

PATIENT
  Age: 41 Year
  Sex: Male

DRUGS (1)
  1. PULMOZYME [Suspect]
     Active Substance: DORNASE ALFA
     Indication: PRODUCT USED FOR UNKNOWN INDICATION
     Dosage: FREQUENCY : DAILY, DATE OF USE: PRESENT- ONGOING: YES
     Route: 055

REACTIONS (2)
  - Salivary hypersecretion [Unknown]
  - Drooling [Unknown]

NARRATIVE: CASE EVENT DATE: 20200706
